FAERS Safety Report 7228345-0 (Version None)
Quarter: 2011Q1

REPORT INFORMATION
  Report Type: 
  Country: None (occurrence: None)
  Receive Date: 20110114
  Receipt Date: 20110106
  Transmission Date: 20110831
  Serious: Yes (Hospitalization, Disabling)
  Sender: FDA-Public Use
  Company Number: US-ALLERGAN-1001693US

PATIENT
  Age: 56 Year
  Sex: Female
  Weight: 62.132 kg

DRUGS (5)
  1. BOTOXA? [Suspect]
     Indication: HEAD TITUBATION
     Dosage: 300 UNITS, SINGLE
     Route: 030
     Dates: start: 20080514, end: 20080514
  2. MYSOLINE [Concomitant]
     Indication: TREMOR
     Dosage: 450 MG, UNK
  3. BOTOXA? [Suspect]
     Indication: TORTICOLLIS
     Dosage: 200 UNITS, SINGLE
     Route: 030
     Dates: start: 20080205, end: 20080205
  4. DEPO-MEDROL [Concomitant]
     Indication: PAIN
     Dosage: 20 UNITS, SINGLE
     Route: 030
     Dates: start: 20080514, end: 20080514
  5. BOTOXA? [Suspect]
     Dosage: UNK
     Route: 030
     Dates: start: 20080514, end: 20080514

REACTIONS (28)
  - MOVEMENT DISORDER [None]
  - BURSITIS [None]
  - PNEUMONIA [None]
  - GAIT DISTURBANCE [None]
  - RASH GENERALISED [None]
  - LEUKOPENIA [None]
  - THROMBOCYTOPENIA [None]
  - RHEUMATOID ARTHRITIS [None]
  - COGNITIVE DISORDER [None]
  - DEMENTIA [None]
  - BACK PAIN [None]
  - VOMITING [None]
  - HEADACHE [None]
  - SYNCOPE [None]
  - DYSPHAGIA [None]
  - BURNING SENSATION [None]
  - MUSCULAR WEAKNESS [None]
  - PYREXIA [None]
  - ALOPECIA [None]
  - MOUTH ULCERATION [None]
  - ENCEPHALOMYELITIS [None]
  - ENCEPHALITIS [None]
  - CONFUSIONAL STATE [None]
  - MENTAL DISORDER [None]
  - NECK PAIN [None]
  - WEIGHT DECREASED [None]
  - DIARRHOEA [None]
  - OSTEOPENIA [None]
